FAERS Safety Report 9216086 (Version 1)
Quarter: 2013Q2

REPORT INFORMATION
  Report Type: Spontaneous
  Country: US (occurrence: US)
  Receive Date: 20130408
  Receipt Date: 20130408
  Transmission Date: 20140414
  Serious: Yes (Other)
  Sender: FDA-Public Use
  Company Number: US-TEVA-396347USA

PATIENT
  Sex: Female
  Weight: 49.94 kg

DRUGS (3)
  1. COPAXONE [Suspect]
     Indication: MULTIPLE SCLEROSIS
  2. FLEXERIL [Concomitant]
     Indication: MULTIPLE SCLEROSIS
  3. PROGESTERON BIO IDENTICAL [Concomitant]

REACTIONS (5)
  - Hepatitis C [Not Recovered/Not Resolved]
  - Cerebral atrophy [Unknown]
  - Hepatic enzyme increased [Recovered/Resolved]
  - Alopecia [Unknown]
  - Petechiae [Unknown]
